FAERS Safety Report 24657528 (Version 1)
Quarter: 2024Q4

REPORT INFORMATION
  Report Type: Spontaneous
  Country: SE (occurrence: SE)
  Receive Date: 20241125
  Receipt Date: 20241125
  Transmission Date: 20250115
  Serious: Yes (Death)
  Sender: BOEHRINGER INGELHEIM
  Company Number: None

PATIENT
  Age: 65 Year
  Sex: Male

DRUGS (8)
  1. JARDIANCE [Suspect]
     Active Substance: EMPAGLIFLOZIN
     Indication: Diabetes mellitus
     Route: 048
     Dates: start: 20230823, end: 20241021
  2. NICOTINELL [Concomitant]
     Active Substance: NICOTINE
     Indication: Product used for unknown indication
     Route: 062
     Dates: start: 20230810
  3. BISOPROLOL [Concomitant]
     Active Substance: BISOPROLOL
     Indication: Product used for unknown indication
     Route: 048
     Dates: start: 20231108
  4. Furix [Concomitant]
     Indication: Product used for unknown indication
     Route: 048
     Dates: start: 20231110
  5. NITROLINGUAL [Concomitant]
     Active Substance: NITROGLYCERIN
     Indication: Product used for unknown indication
     Dosage: 1-2 DOSES WHEN NEEDED, MAXIMUM 8 DOSES EACH DAY SUBLINGUAL?SUBLINGUAL SPRAY?PDF-10309000
     Route: 060
     Dates: start: 20231110
  6. ZOPICLONE [Concomitant]
     Active Substance: ZOPICLONE
     Indication: Product used for unknown indication
     Dosage: 1 TABLET IN THE NIGHT, WHEN NEEDED. MAX 1 TABLET EACH DAY, ORAL
     Dates: start: 20240927
  7. EPLERENONE [Concomitant]
     Active Substance: EPLERENONE
     Indication: Product used for unknown indication
     Route: 048
     Dates: start: 20231108
  8. UREA [Concomitant]
     Active Substance: UREA
     Indication: Product used for unknown indication
     Dosage: 1 APPLICATION WHEN NEEDED,  EXTERNAL
     Dates: start: 20240429

REACTIONS (1)
  - Euglycaemic diabetic ketoacidosis [Fatal]

NARRATIVE: CASE EVENT DATE: 20241021
